FAERS Safety Report 17793707 (Version 1)
Quarter: 2020Q2

REPORT INFORMATION
  Report Type: Report from Study
  Country: US (occurrence: US)
  Receive Date: 20200515
  Receipt Date: 20200515
  Transmission Date: 20200714
  Serious: Yes (Hospitalization, Other)
  Sender: FDA-Public Use
  Company Number: US-SA-2020SA108792

PATIENT
  Age: 69 Year
  Sex: Male

DRUGS (24)
  1. SARILUMAB [Suspect]
     Active Substance: SARILUMAB
     Indication: COVID-19
     Dosage: 200 MG, 1X
     Route: 042
     Dates: start: 20200326, end: 20200326
  2. METHYLPREDNISOLONE. [Concomitant]
     Active Substance: METHYLPREDNISOLONE
     Dosage: 30 MG
     Route: 042
     Dates: start: 20200410, end: 20200418
  3. AZTREONAM. [Concomitant]
     Active Substance: AZTREONAM
     Dosage: 2000 UNK
     Route: 042
     Dates: start: 20200406, end: 20200414
  4. ACETAMINOPHEN. [Concomitant]
     Active Substance: ACETAMINOPHEN
     Indication: PYREXIA
     Dosage: 650 MG, PRN
     Route: 048
     Dates: start: 20200322
  5. NORVASC [Concomitant]
     Active Substance: AMLODIPINE BESYLATE
     Indication: ARRHYTHMIA
     Dosage: 5 MG, TOTAL
     Route: 048
     Dates: start: 20200409, end: 20200409
  6. NOREPINEPHRINE. [Concomitant]
     Active Substance: NOREPINEPHRINE
     Indication: HYPOTENSION
     Dosage: 1-30 MCG/MIN, CONTINUOUS
     Route: 042
     Dates: start: 20200404, end: 20200405
  7. VANCOMYCIN [Concomitant]
     Active Substance: VANCOMYCIN
     Indication: SEPSIS
     Dosage: 1250 MG, TOTAL
     Route: 042
     Dates: start: 20200410, end: 20200411
  8. HYDROXYCHLOROQUINE [Concomitant]
     Active Substance: HYDROXYCHLOROQUINE
     Indication: CORONAVIRUS INFECTION
     Dosage: 400 MG, 1X
     Route: 048
     Dates: start: 20200324, end: 20200324
  9. HYDROXYCHLOROQUINE [Concomitant]
     Active Substance: HYDROXYCHLOROQUINE
     Dosage: 200 MG, QD
     Route: 048
     Dates: start: 20200325, end: 20200329
  10. AZITHROMYCIN ANHYDROUS. [Concomitant]
     Active Substance: AZITHROMYCIN ANHYDROUS
     Indication: CORONAVIRUS INFECTION
     Dosage: 500 MG
     Route: 048
     Dates: start: 20200322, end: 20200404
  11. CEFTRIAXONE. [Concomitant]
     Active Substance: CEFTRIAXONE
     Indication: CORONAVIRUS INFECTION
     Dosage: 1000 MG
     Route: 042
     Dates: start: 20200322, end: 20200322
  12. DOXYCYCLINE. [Concomitant]
     Active Substance: DOXYCYCLINE
     Indication: PNEUMONIA
     Dosage: 100 MG, BID
     Route: 048
     Dates: start: 20200324, end: 20200329
  13. METHYLPREDNISOLONE. [Concomitant]
     Active Substance: METHYLPREDNISOLONE
     Indication: INFLAMMATION
     Dosage: 40 MG
     Route: 042
     Dates: start: 20200408, end: 20200410
  14. METHYLPREDNISOLONE. [Concomitant]
     Active Substance: METHYLPREDNISOLONE
     Dosage: 20 MG
     Route: 042
     Dates: start: 20200418, end: 20200420
  15. AZTREONAM. [Concomitant]
     Active Substance: AZTREONAM
     Indication: CORONAVIRUS INFECTION
     Dosage: 1000 MG
     Route: 042
     Dates: start: 20200403, end: 20200406
  16. AZITHROMYCIN ANHYDROUS. [Concomitant]
     Active Substance: AZITHROMYCIN ANHYDROUS
     Dosage: 250 UNK
     Route: 048
     Dates: start: 20200405, end: 20200408
  17. NOREPINEPHRINE. [Concomitant]
     Active Substance: NOREPINEPHRINE
     Dosage: 5-30 MCG/MIN, CONTINUOUS
     Route: 042
     Dates: start: 20200406, end: 20200406
  18. NOREPINEPHRINE. [Concomitant]
     Active Substance: NOREPINEPHRINE
     Dosage: 1-30 MCG/MIN, CONTINUOUS
     Route: 042
     Dates: start: 20200409, end: 20200412
  19. METHYLPREDNISOLONE. [Concomitant]
     Active Substance: METHYLPREDNISOLONE
     Dosage: 20 MG FREQUENCY REDUCED
     Dates: start: 20200420, end: 20200421
  20. SARILUMAB [Suspect]
     Active Substance: SARILUMAB
     Dosage: 200 MG, 1X
     Route: 042
     Dates: start: 20200423, end: 20200423
  21. VANCOMYCIN [Concomitant]
     Active Substance: VANCOMYCIN
     Dosage: 1250 MG, TOTAL
     Route: 042
     Dates: start: 20200414, end: 20200414
  22. SARILUMAB [Suspect]
     Active Substance: SARILUMAB
     Dosage: 200 MG, 1X
     Route: 042
     Dates: start: 20200415, end: 20200415
  23. ASPIRIN [ACETYLSALICYLIC ACID] [Concomitant]
     Active Substance: ASPIRIN
     Indication: ANTICOAGULANT THERAPY
     Dosage: 81 MG
     Route: 048
     Dates: start: 20200427
  24. VANCOMYCIN [Concomitant]
     Active Substance: VANCOMYCIN
     Indication: SHOCK
     Dosage: 1500 MG
     Route: 042
     Dates: start: 20200401, end: 20200408

REACTIONS (6)
  - Gastric ulcer [Unknown]
  - Aspartate aminotransferase increased [Recovered/Resolved]
  - Acute kidney injury [Unknown]
  - Bacteraemia [Unknown]
  - Alanine aminotransferase increased [Unknown]
  - Alanine aminotransferase increased [Unknown]

NARRATIVE: CASE EVENT DATE: 20200403
